FAERS Safety Report 7841434-2 (Version None)
Quarter: 2011Q4

REPORT INFORMATION
  Report Type: 
  Country: None (occurrence: None)
  Receive Date: 20111025
  Receipt Date: 20111017
  Transmission Date: 20120403
  Serious: Yes (Other)
  Sender: FDA-Public Use
  Company Number: AT-JNJFOC-20110910333

PATIENT
  Sex: Female
  Weight: 64 kg

DRUGS (11)
  1. CONCOR [Concomitant]
  2. TRAZODONE HCL [Concomitant]
  3. DOLPASSE [Concomitant]
  4. MOXONIDINE [Concomitant]
  5. XARELTO [Suspect]
     Indication: KNEE ARTHROPLASTY
     Route: 048
     Dates: start: 20110917, end: 20110922
  6. HYPREN PLUS [Concomitant]
  7. XARELTO [Suspect]
     Indication: THROMBOSIS PROPHYLAXIS
     Route: 048
     Dates: start: 20110917, end: 20110922
  8. NOVALGIN [Concomitant]
  9. REQUIP [Concomitant]
  10. METFORMIN HCL [Concomitant]
  11. LANSOPRAZOLE [Concomitant]

REACTIONS (4)
  - FEELING HOT [None]
  - PAIN IN EXTREMITY [None]
  - DEEP VEIN THROMBOSIS [None]
  - OEDEMA PERIPHERAL [None]
